FAERS Safety Report 8116693-1 (Version None)
Quarter: 2012Q1

REPORT INFORMATION
  Report Type: 
  Country: None (occurrence: None)
  Receive Date: 20120206
  Receipt Date: 20120126
  Transmission Date: 20120608
  Serious: Yes (Other)
  Sender: FDA-Public Use
  Company Number: US-PERRIGO-12US000771

PATIENT
  Age: 52 Year
  Sex: Male
  Weight: 90.703 kg

DRUGS (2)
  1. IBUPROFEN AND DIPHENHYDRAMINE [Suspect]
     Indication: INFLUENZA
  2. IBUPROFEN AND DIPHENHYDRAMINE [Suspect]
     Indication: NASOPHARYNGITIS
     Dosage: 2 TABLETS, NIGHTLY
     Route: 048
     Dates: start: 20120122, end: 20120124

REACTIONS (7)
  - TONGUE BLISTERING [None]
  - OCULAR HYPERAEMIA [None]
  - DRY EYE [None]
  - EYE PRURITUS [None]
  - SWELLING FACE [None]
  - VIITH NERVE PARALYSIS [None]
  - SWOLLEN TONGUE [None]
